FAERS Safety Report 16708297 (Version 1)
Quarter: 2019Q3

REPORT INFORMATION
  Report Type: Spontaneous
  Country: US (occurrence: US)
  Receive Date: 20190816
  Receipt Date: 20190816
  Transmission Date: 20191004
  Serious: Yes (Other)
  Sender: FDA-Public Use
  Company Number: US-ABBVIE-19K-163-2886877-00

PATIENT
  Sex: Female

DRUGS (1)
  1. LUPRON [Suspect]
     Active Substance: LEUPROLIDE ACETATE
     Indication: PRODUCT USED FOR UNKNOWN INDICATION
     Route: 065

REACTIONS (10)
  - Alopecia [Unknown]
  - Colon injury [Unknown]
  - Discomfort [Unknown]
  - Nail disorder [Unknown]
  - Diabetes mellitus [Unknown]
  - Pain [Unknown]
  - Cataract [Unknown]
  - Nervous system disorder [Unknown]
  - Neuropathy peripheral [Unknown]
  - Blindness [Unknown]
